FAERS Safety Report 15501035 (Version 2)
Quarter: 2018Q4

REPORT INFORMATION
  Report Type: Spontaneous
  Country: ES (occurrence: ES)
  Receive Date: 20181015
  Receipt Date: 20181022
  Transmission Date: 20190205
  Serious: Yes (Other)
  Sender: FDA-Public Use
  Company Number: ES-JNJFOC-20181014843

PATIENT
  Age: 76 Year
  Sex: Male

DRUGS (4)
  1. METOTREXATE [Concomitant]
     Active Substance: METHOTREXATE SODIUM
     Route: 065
  2. ADALIMUMAB [Suspect]
     Active Substance: ADALIMUMAB
     Indication: PSORIASIS
     Route: 065
  3. ADALIMUMAB [Suspect]
     Active Substance: ADALIMUMAB
     Indication: PSORIASIS
     Route: 065
  4. INFLIXIMAB, RECOMBINANT [Suspect]
     Active Substance: INFLIXIMAB
     Indication: PSORIASIS
     Route: 042
     Dates: start: 20071122, end: 20100204

REACTIONS (4)
  - Squamous cell carcinoma of lung [Unknown]
  - Dermatitis exfoliative generalised [Unknown]
  - Drug ineffective [Unknown]
  - Psoriatic arthropathy [Unknown]
